FAERS Safety Report 9440296 (Version 2)
Quarter: 2013Q3

REPORT INFORMATION
  Report Type: Spontaneous
  Country: IT (occurrence: IT)
  Receive Date: 20130805
  Receipt Date: 20130909
  Transmission Date: 20140515
  Serious: Yes (Hospitalization)
  Sender: FDA-Public Use
  Company Number: IT-ELI_LILLY_AND_COMPANY-IT201307009270

PATIENT
  Age: 81 Year
  Sex: Male
  Weight: 65 kg

DRUGS (6)
  1. OLANZAPINE [Suspect]
     Indication: BIPOLAR DISORDER
     Dosage: 20 MG, QD
     Route: 048
     Dates: end: 20130602
  2. OLANZAPINE [Suspect]
     Dosage: 5 MG, UNKNOWN
     Route: 065
     Dates: start: 20130603, end: 20130605
  3. OLANZAPINE [Suspect]
     Dosage: 2.5 MG, QD
     Route: 065
     Dates: start: 20130606
  4. TEGRETOL [Concomitant]
     Indication: BIPOLAR DISORDER
     Dosage: 200 MG, BID
  5. METFORMIN [Concomitant]
     Indication: DIABETES MELLITUS
     Dosage: UNK
  6. AMITRIPTYLENE [Concomitant]

REACTIONS (8)
  - Speech disorder [Recovered/Resolved]
  - Bradykinesia [Recovered/Resolved]
  - Movement disorder [Recovered/Resolved]
  - Sopor [Recovered/Resolved]
  - Asthenia [Recovered/Resolved]
  - Antidepressant drug clearance decreased [Unknown]
  - Drug level increased [Unknown]
  - Overdose [Recovered/Resolved]
